FAERS Safety Report 5347801-3 (Version None)
Quarter: 2007Q2

REPORT INFORMATION
  Report Type: 
  Country: None (occurrence: None)
  Receive Date: 20070516
  Receipt Date: 20070423
  Transmission Date: 20071010
  Serious: No
  Sender: FDA-Public Use
  Company Number: SPV1-2007-02294

PATIENT
  Age: 39 Year
  Sex: Female
  Weight: 57.6 kg

DRUGS (1)
  1. FOSRENOL [Suspect]
     Indication: BLOOD IRON INCREASED
     Dosage: 1000 MG TABLET PO WITH EACH MEAL, ORAL
     Route: 048
     Dates: start: 20070419

REACTIONS (2)
  - MALAISE [None]
  - SOMNOLENCE [None]
